FAERS Safety Report 24153101 (Version 1)
Quarter: 2024Q3

REPORT INFORMATION
  Report Type: Spontaneous
  Country: IN (occurrence: IN)
  Receive Date: 20240730
  Receipt Date: 20240730
  Transmission Date: 20241016
  Serious: Yes (Other)
  Sender: MYLAN
  Company Number: IN-MYLANLABS-2024M1070374

PATIENT
  Age: 30 Year
  Sex: Male

DRUGS (5)
  1. ASPIRIN\CLOPIDOGREL BISULFATE [Suspect]
     Active Substance: ASPIRIN\CLOPIDOGREL BISULFATE
     Indication: Product used for unknown indication
     Dosage: 150 MILLIGRAM, QD (OD)
     Route: 065
  2. HEPARIN [Suspect]
     Active Substance: HEPARIN SODIUM
     Indication: Product used for unknown indication
     Dosage: 0.6 MILLILITER, BID (BD)
     Route: 058
  3. URSODIOL [Suspect]
     Active Substance: URSODIOL
     Indication: Product used for unknown indication
     Dosage: 300 MILLIGRAM, TID (TDS)
     Route: 065
  4. TORSEMIDE [Suspect]
     Active Substance: TORSEMIDE
     Indication: Product used for unknown indication
     Dosage: 10 MILLIGRAM, QD (OD)
     Route: 042
  5. RETEPLASE [Suspect]
     Active Substance: RETEPLASE
     Indication: Product used for unknown indication
     Dosage: 2 BOLUS DOSES OF 10 UNITS
     Route: 042

REACTIONS (1)
  - Therapeutic product effect incomplete [Unknown]
